FAERS Safety Report 9438623 (Version 1)
Quarter: 2013Q3

REPORT INFORMATION
  Report Type: Spontaneous
  Country: SE (occurrence: SE)
  Receive Date: 20130802
  Receipt Date: 20130802
  Transmission Date: 20140515
  Serious: Yes (Death, Other)
  Sender: FDA-Public Use
  Company Number: SE-GLAXOSMITHKLINE-B0912483A

PATIENT
  Age: 75 Year
  Sex: Male

DRUGS (10)
  1. LAMICTAL DC [Suspect]
     Indication: EPILEPSY
     Dosage: 100MGD PER DAY
     Route: 048
     Dates: start: 20130315, end: 20130409
  2. ALVEDON [Concomitant]
  3. NOVOMIX [Concomitant]
  4. SIMVASTATIN [Concomitant]
  5. RAMIPRIL [Concomitant]
  6. AMLODIPIN [Concomitant]
  7. CLOPIDOGREL [Concomitant]
  8. BETOLVEX [Concomitant]
  9. NOVORAPID [Concomitant]
  10. SELOKEN ZOC [Concomitant]

REACTIONS (2)
  - Stevens-Johnson syndrome [Fatal]
  - Adverse drug reaction [Fatal]
